FAERS Safety Report 25149301 (Version 3)
Quarter: 2025Q3

REPORT INFORMATION
  Report Type: Report from Study
  Country: CA (occurrence: CA)
  Receive Date: 20250402
  Receipt Date: 20250822
  Transmission Date: 20251021
  Serious: Yes (Hospitalization, Other)
  Sender: TAKEDA
  Company Number: CA-TAKEDA-2025TUS031808

PATIENT
  Age: 72 Year
  Sex: Female

DRUGS (10)
  1. VEDOLIZUMAB [Suspect]
     Active Substance: VEDOLIZUMAB
     Indication: Crohn^s disease
  2. VEDOLIZUMAB [Suspect]
     Active Substance: VEDOLIZUMAB
  3. VEDOLIZUMAB [Suspect]
     Active Substance: VEDOLIZUMAB
  4. METFORMIN [Concomitant]
     Active Substance: METFORMIN HYDROCHLORIDE
  5. ALLOPURINOL [Concomitant]
     Active Substance: ALLOPURINOL
  6. AMITRIPTYLINE [Concomitant]
     Active Substance: AMITRIPTYLINE
  7. KEPPRA [Concomitant]
     Active Substance: LEVETIRACETAM
  8. PREDNISONE [Concomitant]
     Active Substance: PREDNISONE
  9. INFLECTRA [Concomitant]
     Active Substance: INFLIXIMAB-DYYB
  10. ASPIRIN [Concomitant]
     Active Substance: ASPIRIN

REACTIONS (3)
  - Crohn^s disease [Not Recovered/Not Resolved]
  - Intestinal obstruction [Recovered/Resolved]
  - Therapy non-responder [Unknown]

NARRATIVE: CASE EVENT DATE: 20250322
